FAERS Safety Report 4766680-6 (Version None)
Quarter: 2005Q3

REPORT INFORMATION
  Report Type: 
  Country: None (occurrence: None)
  Receive Date: 20050909
  Receipt Date: 20050826
  Transmission Date: 20060218
  Serious: Yes (Hospitalization)
  Sender: FDA-Public Use
  Company Number: 2005AP000643

PATIENT
  Age: 39 Year
  Sex: Female

DRUGS (10)
  1. FLUOXETINE HYDROCHLORIDE [Suspect]
     Indication: DEPRESSION
  2. LINEZOLID [Suspect]
     Indication: STAPHYLOCOCCAL INFECTION
  3. DISULFIRAM [Concomitant]
  4. BUSPIRONE HCL [Concomitant]
  5. CYCLOBENZAPRINE HCL [Concomitant]
  6. FLOATE SODIUM [Concomitant]
  7. PHYSOSTIGMINE [Concomitant]
  8. LORAZEPAM [Concomitant]
  9. HALOPERIDOL [Concomitant]
  10. VANCOMYCIN [Concomitant]

REACTIONS (12)
  - ALCOHOL WITHDRAWAL SYNDROME [None]
  - ANTICHOLINERGIC SYNDROME [None]
  - DRUG INTERACTION [None]
  - DRUG WITHDRAWAL SYNDROME [None]
  - LOSS OF CONSCIOUSNESS [None]
  - METHICILLIN-RESISTANT STAPHYLOCOCCAL AUREUS TEST POSITIVE [None]
  - NEUROLEPTIC MALIGNANT SYNDROME [None]
  - OVERDOSE [None]
  - PNEUMONIA ASPIRATION [None]
  - RESPIRATORY DEPRESSION [None]
  - SEROTONIN SYNDROME [None]
  - SPUTUM CULTURE POSITIVE [None]
